FAERS Safety Report 7483017-2 (Version None)
Quarter: 2011Q2

REPORT INFORMATION
  Report Type: 
  Country: None (occurrence: None)
  Receive Date: 20110516
  Receipt Date: 20110509
  Transmission Date: 20111010
  Serious: Yes (Other)
  Sender: FDA-Public Use
  Company Number: FR-PFIZER INC-2011098458

PATIENT
  Age: 53 Year
  Sex: Male
  Weight: 85 kg

DRUGS (11)
  1. CLINDAMYCIN HCL [Suspect]
     Dosage: 800 MG, 3X/DAY
     Route: 042
     Dates: start: 20110329, end: 20110405
  2. AMOXICILLIN [Concomitant]
     Dosage: 2 G, 3X/DAY
     Route: 042
     Dates: start: 20110329
  3. SYMBICORT [Concomitant]
     Indication: ASTHMA
     Dosage: 2 PUFFS, 2X/DAY
  4. LOVENOX [Concomitant]
     Dosage: 0.4 ML, UNK
     Route: 058
     Dates: start: 20110328
  5. DRUG, UNSPECIFIED [Concomitant]
     Indication: CROHN'S DISEASE
     Dosage: UNK
     Route: 054
     Dates: start: 20030101
  6. XYZAL [Concomitant]
     Indication: ASTHMA
     Dosage: UNK
  7. AUGMENTIN [Concomitant]
     Indication: PYREXIA
     Dosage: 1 G, 3X/DAY
     Dates: start: 20110327, end: 20110328
  8. AUGMENTIN [Concomitant]
     Indication: ERYSIPELAS
  9. TETANUS VACCINE ^PASTEUR^ [Suspect]
     Indication: IMMUNISATION
     Dosage: 1 DF, SINGLE
     Route: 058
     Dates: start: 20110404, end: 20110404
  10. PENTASA [Concomitant]
     Indication: CROHN'S DISEASE
     Dosage: 2 G, 2X/DAY
     Route: 048
     Dates: start: 20030101
  11. AUGMENTIN [Concomitant]
     Indication: SEPSIS

REACTIONS (1)
  - TOXIC SKIN ERUPTION [None]
